FAERS Safety Report 5766912-1 (Version None)
Quarter: 2008Q2

REPORT INFORMATION
  Report Type: 
  Country: None (occurrence: None)
  Receive Date: 20080606
  Receipt Date: 20080528
  Transmission Date: 20081010
  Serious: Yes (Death)
  Sender: FDA-Public Use
  Company Number: 06P-069-0453851-00

PATIENT
  Sex: Female

DRUGS (2)
  1. SYNAGIS [Suspect]
     Indication: LOWER RESPIRATORY TRACT INFECTION
     Dosage: 40 MG (40 MG) INTRAMUSCULAR
     Route: 030
  2. SYNAGIS [Suspect]
     Indication: PROPHYLAXIS
     Dosage: 40 MG (40 MG) INTRAMUSCULAR
     Route: 030

REACTIONS (3)
  - ASPIRATION [None]
  - CYANOSIS [None]
  - RESPIRATORY ARREST [None]
